FAERS Safety Report 5971512-4 (Version None)
Quarter: 2008Q4

REPORT INFORMATION
  Report Type: 
  Country: None (occurrence: None)
  Receive Date: 20081201
  Receipt Date: 20081121
  Transmission Date: 20090506
  Serious: Yes (Death, Life-Threatening)
  Sender: FDA-Public Use
  Company Number: JP-WYE-H05418908

PATIENT
  Sex: Male
  Weight: 60 kg

DRUGS (6)
  1. ANCARON [Suspect]
     Indication: VENTRICULAR TACHYCARDIA
     Dosage: 150 MG SOLN-10 ML/MIN
     Route: 042
     Dates: start: 20080123, end: 20080123
  2. ANCARON [Suspect]
     Dosage: 150 MG SOLN-33 ML/HR
     Route: 042
     Dates: start: 20080123, end: 20080123
  3. ANCARON [Suspect]
     Dosage: 150 MG SOLN-17 ML/HR
     Route: 042
     Dates: start: 20080123, end: 20080202
  4. DOBUTREX [Concomitant]
     Dosage: ^4-11 GAMMA^
     Route: 042
     Dates: start: 20080115, end: 20080124
  5. SHINBIT [Concomitant]
     Route: 042
     Dates: start: 20080122, end: 20080124
  6. INOVAN [Concomitant]
     Dosage: ^2-11 GAMMA^
     Route: 042
     Dates: start: 20080116, end: 20080124

REACTIONS (2)
  - MULTI-ORGAN FAILURE [None]
  - SEPSIS [None]
